FAERS Safety Report 16545041 (Version 1)
Quarter: 2019Q3

REPORT INFORMATION
  Report Type: Spontaneous
  Country: US (occurrence: US)
  Receive Date: 20190528
  Receipt Date: 20190528
  Transmission Date: 20191004
  Serious: Yes (Life-Threatening, Disabling, Other)
  Sender: FDA-Public Use
  Company Number: None

PATIENT
  Age: 90 Year
  Sex: Male
  Weight: 72.57 kg

DRUGS (1)
  1. SANCTURA [Suspect]
     Active Substance: TROSPIUM CHLORIDE
     Indication: HYPERTONIC BLADDER
     Route: 048
     Dates: start: 20180910, end: 20180913

REACTIONS (2)
  - Atonic urinary bladder [None]
  - Urinary retention [None]

NARRATIVE: CASE EVENT DATE: 20180910
